FAERS Safety Report 10569019 (Version 2)
Quarter: 2014Q4

REPORT INFORMATION
  Report Type: Spontaneous
  Country: SE (occurrence: SE)
  Receive Date: 20141106
  Receipt Date: 20141223
  Transmission Date: 20150529
  Serious: Yes (Hospitalization)
  Sender: FDA-Public Use
  Company Number: SE-TEVA-519938ISR

PATIENT
  Age: 24 Year
  Sex: Male

DRUGS (11)
  1. STRATTERA [Suspect]
     Active Substance: ATOMOXETINE HYDROCHLORIDE
     Route: 048
     Dates: start: 20130731, end: 20130731
  2. SERTRALINE [Suspect]
     Active Substance: SERTRALINE HYDROCHLORIDE
     Route: 048
     Dates: start: 20130731, end: 20130731
  3. BEHEPAN [Concomitant]
     Active Substance: HYDROXOCOBALAMIN
  4. GRAZAX [Concomitant]
     Active Substance: PHLEUM PRATENSE POLLEN
  5. RHINOCORT [Concomitant]
     Active Substance: BUDESONIDE
  6. IMOVANE [Suspect]
     Active Substance: ZOPICLONE
     Dates: start: 20130731, end: 20130731
  7. ATARAX [Concomitant]
     Active Substance: HYDROXYZINE\HYDROXYZINE HYDROCHLORIDE
  8. OMEPRAZOLE. [Concomitant]
     Active Substance: OMEPRAZOLE
  9. PREDNISOLONE. [Concomitant]
     Active Substance: PREDNISOLONE
  10. OXASCAND [Suspect]
     Active Substance: OXAZEPAM
     Route: 048
     Dates: start: 20130731, end: 20130731
  11. RITALIN [Suspect]
     Active Substance: METHYLPHENIDATE HYDROCHLORIDE
     Route: 048
     Dates: start: 20130731, end: 20130731

REACTIONS (5)
  - Toxicity to various agents [Recovered/Resolved]
  - Hypotension [Recovered/Resolved]
  - Acidosis [Recovered/Resolved]
  - Suicidal ideation [Unknown]
  - Tachycardia [Recovered/Resolved]

NARRATIVE: CASE EVENT DATE: 20130731
